FAERS Safety Report 9449820 (Version 1)
Quarter: 2013Q3

REPORT INFORMATION
  Report Type: Report from Study
  Country: GB (occurrence: CA)
  Receive Date: 20130809
  Receipt Date: 20130809
  Transmission Date: 20140515
  Serious: Yes (Hospitalization, Disabling)
  Sender: FDA-Public Use
  Company Number: GB-SANOFI-AVENTIS-2013SA077017

PATIENT
  Age: 42 Year
  Sex: Female
  Weight: 72 kg

DRUGS (8)
  1. DOCETAXEL [Suspect]
     Indication: HER-2 POSITIVE BREAST CANCER
     Route: 042
     Dates: start: 20090318, end: 20090723
  2. DOCETAXEL [Suspect]
     Indication: HER-2 POSITIVE BREAST CANCER
     Route: 042
     Dates: start: 20090318, end: 20090723
  3. BEVACIZUMAB [Suspect]
     Indication: HER-2 POSITIVE BREAST CANCER
     Route: 042
     Dates: start: 20090318, end: 20090723
  4. CARBOPLATIN [Suspect]
     Indication: HER-2 POSITIVE BREAST CANCER
     Route: 042
     Dates: start: 20090318, end: 20090723
  5. TRASTUZUMAB [Concomitant]
     Indication: HER-2 POSITIVE BREAST CANCER
     Route: 042
     Dates: start: 20090318, end: 20090723
  6. NORVASC [Concomitant]
     Dates: start: 20090419
  7. PANTOLOC [Concomitant]
     Dates: start: 20090428
  8. HYDROCHLOROTHIAZIDE [Concomitant]
     Dates: start: 20090419

REACTIONS (2)
  - Encephalopathy [Recovered/Resolved with Sequelae]
  - Febrile neutropenia [Recovered/Resolved]
